FAERS Safety Report 15419447 (Version 6)
Quarter: 2019Q3

REPORT INFORMATION
  Report Type: Spontaneous
  Country: US (occurrence: US)
  Receive Date: 20180924
  Receipt Date: 20190715
  Transmission Date: 20191004
  Serious: Yes (Hospitalization, Other)
  Sender: FDA-Public Use
  Company Number: US-SA-2018SA262499

PATIENT
  Age: 64 Year
  Sex: Female

DRUGS (1)
  1. AUBAGIO [Suspect]
     Active Substance: TERIFLUNOMIDE
     Indication: MULTIPLE SCLEROSIS
     Dosage: 14 MG, QD
     Route: 048
     Dates: start: 201806

REACTIONS (14)
  - Cerebral disorder [Unknown]
  - Depression [Unknown]
  - Tremor [Unknown]
  - General physical health deterioration [Unknown]
  - Malaise [Unknown]
  - Anxiety [Unknown]
  - Fall [Unknown]
  - Asthenia [Unknown]
  - Product dose omission [Unknown]
  - Hypoaesthesia [Unknown]
  - Hospitalisation [Unknown]
  - Muscular weakness [Unknown]
  - Confusional state [Unknown]
  - Nervousness [Unknown]
